FAERS Safety Report 10635706 (Version 2)
Quarter: 2015Q1

REPORT INFORMATION
  Report Type: Spontaneous
  Country: RO (occurrence: RO)
  Receive Date: 20141205
  Receipt Date: 20150102
  Transmission Date: 20150720
  Serious: Yes (Hospitalization)
  Sender: FDA-Public Use
  Company Number: RO-TEVA-525891ISR

PATIENT
  Age: 40 Year
  Sex: Male

DRUGS (3)
  1. SODIUM VALPROATE [Suspect]
     Active Substance: VALPROATE SODIUM
     Indication: SEIZURE
     Dosage: 600 MG
     Route: 065
     Dates: start: 2011, end: 20130709
  2. LEVETIRACETAM. [Concomitant]
     Active Substance: LEVETIRACETAM
     Indication: SEIZURE
     Dosage: 500 MG
     Route: 065
     Dates: start: 2011
  3. CARBAMAZEPINE. [Suspect]
     Active Substance: CARBAMAZEPINE
     Indication: SEIZURE
     Dosage: 400 MG
     Route: 065
     Dates: start: 2011

REACTIONS (3)
  - Eosinophil count increased [Recovered/Resolved]
  - Pleural effusion [Recovered/Resolved]
  - Eosinophilia [Recovered/Resolved]
